FAERS Safety Report 6198992-6 (Version None)
Quarter: 2009Q2

REPORT INFORMATION
  Report Type: 
  Country: None (occurrence: None)
  Receive Date: 20090519
  Receipt Date: 20090519
  Transmission Date: 20091009
  Serious: No
  Sender: FDA-Public Use
  Company Number: None

PATIENT
  Sex: Male
  Weight: 17.7 kg

DRUGS (6)
  1. DEXAMETHASONE [Suspect]
     Indication: ADENOTONSILLECTOMY
     Dosage: 9MG 8P AND 8AM IV 4/21 8PM AND 4/22 8AM
     Route: 042
     Dates: start: 20090421, end: 20090422
  2. DEXAMETHASONE [Suspect]
     Indication: DRUG USE FOR UNKNOWN INDICATION
     Dosage: 9MG 8P AND 8AM IV 4/21 8PM AND 4/22 8AM
     Route: 042
     Dates: start: 20090421, end: 20090422
  3. DEXAMETHASONE [Suspect]
     Indication: SWELLING
     Dosage: 9MG 8P AND 8AM IV 4/21 8PM AND 4/22 8AM
     Route: 042
     Dates: start: 20090421, end: 20090422
  4. ZOFRAN [Concomitant]
  5. LORTAB [Concomitant]
  6. DECADRON [Concomitant]

REACTIONS (1)
  - VOMITING [None]
